FAERS Safety Report 17105744 (Version 1)
Quarter: 2019Q4

REPORT INFORMATION
  Report Type: Spontaneous
  Country: US (occurrence: US)
  Receive Date: 20191203
  Receipt Date: 20191203
  Transmission Date: 20200122
  Serious: No
  Sender: FDA-Public Use
  Company Number: US-ALKERMES INC.-ALK-2019-006218

PATIENT
  Age: 69 Year
  Sex: Male

DRUGS (1)
  1. VIVITROL [Suspect]
     Active Substance: NALTREXONE
     Indication: ALCOHOLISM
     Dosage: 380 MG, QMO
     Route: 030
     Dates: start: 20191112

REACTIONS (2)
  - Personality disorder [Not Recovered/Not Resolved]
  - Alcohol induced persisting dementia [Not Recovered/Not Resolved]

NARRATIVE: CASE EVENT DATE: 201911
